FAERS Safety Report 5478948-9 (Version None)
Quarter: 2007Q4

REPORT INFORMATION
  Report Type: 
  Country: None (occurrence: None)
  Receive Date: 20071006
  Receipt Date: 20070923
  Transmission Date: 20080405
  Serious: Yes (Other)
  Sender: FDA-Public Use
  Company Number: US-PFIZER INC-2007080704

PATIENT
  Sex: Male
  Weight: 108.18 kg

DRUGS (8)
  1. CHANTIX [Suspect]
     Indication: EX-SMOKER
     Dates: start: 20070701, end: 20070101
  2. NICOTINE [Suspect]
     Indication: EX-SMOKER
  3. DIOVAN [Concomitant]
  4. ALBUTEROL [Concomitant]
  5. COMBIVENT [Concomitant]
  6. ADVAIR DISKUS 100/50 [Concomitant]
  7. LASIX [Concomitant]
  8. RANITIDINE HCL [Concomitant]

REACTIONS (4)
  - BLISTER [None]
  - HYPERSENSITIVITY [None]
  - NAUSEA [None]
  - SOMNOLENCE [None]
